FAERS Safety Report 24428247 (Version 10)
Quarter: 2025Q4

REPORT INFORMATION
  Report Type: Report from Study
  Country: US (occurrence: US)
  Receive Date: 20241011
  Receipt Date: 20251229
  Transmission Date: 20260117
  Serious: Yes (Other)
  Sender: PFIZER
  Company Number: US-PFIZER INC-PV202400064714

PATIENT
  Age: 76 Year
  Sex: Female

DRUGS (8)
  1. IBRANCE [Suspect]
     Active Substance: PALBOCICLIB
     Indication: Breast cancer female
     Dosage: 125 MG
  2. IBRANCE [Suspect]
     Active Substance: PALBOCICLIB
     Dosage: DAILY ON DAYS 1-14 OF A 21-DAY CYCLE, TAKE WITH OR WITHOUT FOOD
     Route: 048
  3. IBRANCE [Suspect]
     Active Substance: PALBOCICLIB
     Dosage: DAILY ON DAYS 1-14 OF A 21-DAY CYCLE
     Route: 048
     Dates: start: 20240911, end: 20241008
  4. IBRANCE [Suspect]
     Active Substance: PALBOCICLIB
     Dosage: ONCE A DAY FOR 21 DAYS ON AND 7 DAYS OFF
  5. IBRANCE [Suspect]
     Active Substance: PALBOCICLIB
     Dosage: 1 TABLET DAILY ON DAYS 1-14 OF A 21-DAY CYCLES
     Route: 048
     Dates: end: 20250110
  6. IBRANCE [Suspect]
     Active Substance: PALBOCICLIB
     Dosage: 1 TABLET DAILY ON DAYS 1-14 OF A 21-DAY CYCLES
     Route: 048
  7. IBRANCE [Suspect]
     Active Substance: PALBOCICLIB
     Dosage: 1 TABLET DAILY FOR 14 DAYS THEN 14 DAYS OFF
     Route: 048
  8. IBRANCE [Suspect]
     Active Substance: PALBOCICLIB
     Dosage: 1 TABLET DAILY ON DAYS 1-14 OF A 21 DAY CYCLE
     Route: 048
     Dates: start: 20251120

REACTIONS (6)
  - Neuropathy peripheral [Unknown]
  - Metastases to spine [Unknown]
  - Blister [Unknown]
  - Off label use [Unknown]
  - Pain [Unknown]
  - Illness [Unknown]
